FAERS Safety Report 20469208 (Version 1)
Quarter: 2022Q1

REPORT INFORMATION
  Report Type: Report from Study
  Country: US (occurrence: US)
  Receive Date: 20220214
  Receipt Date: 20220214
  Transmission Date: 20220423
  Serious: No
  Sender: FDA-Public Use
  Company Number: US-ORG100014127-2021001149

PATIENT
  Sex: Female

DRUGS (14)
  1. LYSODREN [Suspect]
     Active Substance: MITOTANE
     Dosage: 8 TABLETS DAILY
     Route: 048
     Dates: start: 20201013
  2. levothyroxine 125 ?g, tablet [Concomitant]
     Dosage: UNK
     Route: 065
  3. hydrocortisone 5 mg, tablet [Concomitant]
     Dosage: UNK
     Route: 065
  4. valsartan 160 mg , tablets [Concomitant]
     Dosage: UNK
     Route: 065
  5. ASPIRIN EC LOW DOSE 81 mg tablets [Concomitant]
     Dosage: UNK
     Route: 065
  6. COLACE 100 mg capsules [Concomitant]
     Dosage: UNK
     Route: 065
  7. TYLENOL [Concomitant]
     Active Substance: ACETAMINOPHEN
     Dosage: UNK
     Route: 065
  8. VITAMINS [Concomitant]
     Active Substance: VITAMINS
     Dosage: UNK
     Route: 065
  9. vitamin D 2,000 IU tablets [Concomitant]
     Dosage: UNK
     Route: 065
  10. CARDIZEM CD 120 mg capsules [Concomitant]
     Dosage: UNK
     Route: 065
  11. CYMBALTA 20 mg capsules [Concomitant]
     Dosage: UNK
     Route: 065
  12. omeprazole 40 mg capsules [Concomitant]
     Dosage: UNK
     Route: 065
  13. ondansetron 4 mg tablets [Concomitant]
     Dosage: UNK
     Route: 065
  14. spironolactone 25 mg, Tablet [Concomitant]
     Dosage: UNK
     Route: 065

REACTIONS (1)
  - Adverse event [Unknown]
